FAERS Safety Report 6384181-9 (Version None)
Quarter: 2009Q4

REPORT INFORMATION
  Report Type: 
  Country: None (occurrence: None)
  Receive Date: 20091001
  Receipt Date: 20090924
  Transmission Date: 20100525
  Serious: Yes (Other)
  Sender: FDA-Public Use
  Company Number: A0796990A

PATIENT
  Sex: Male
  Weight: 63 kg

DRUGS (3)
  1. SEREVENT [Suspect]
     Indication: PULMONARY FIBROSIS
     Dosage: 3PUFF TWICE PER DAY
     Route: 055
     Dates: start: 20090601
  2. SERETIDE [Suspect]
     Indication: PULMONARY FIBROSIS
     Dates: start: 20090101
  3. ACETYLCYSTEINE [Concomitant]
     Dosage: 600MG PER DAY

REACTIONS (2)
  - CATARACT [None]
  - DRUG INEFFECTIVE [None]
